FAERS Safety Report 9331662 (Version 1)
Quarter: 2013Q2

REPORT INFORMATION
  Report Type: Spontaneous
  Country: US (occurrence: US)
  Receive Date: 20130605
  Receipt Date: 20130605
  Transmission Date: 20140414
  Serious: No
  Sender: FDA-Public Use
  Company Number: US-PFIZER INC-2013170240

PATIENT
  Age: 66 Year
  Sex: Female
  Weight: 99.77 kg

DRUGS (3)
  1. LYRICA [Suspect]
     Indication: NEURALGIA
     Dosage: 50 MG, 1X/DAY
     Route: 048
     Dates: start: 20130530
  2. LYRICA [Suspect]
     Indication: NEURALGIA
  3. HYDROCHLOROTHIAZIDE [Concomitant]
     Dosage: UNK, 1X/DAY
     Route: 048

REACTIONS (2)
  - Feeling drunk [Recovering/Resolving]
  - Dizziness [Recovering/Resolving]
